FAERS Safety Report 7948392-0 (Version None)
Quarter: 2011Q4

REPORT INFORMATION
  Report Type: 
  Country: None (occurrence: None)
  Receive Date: 20111130
  Receipt Date: 20111123
  Transmission Date: 20120403
  Serious: Yes (Hospitalization)
  Sender: FDA-Public Use
  Company Number: AU-B.I. PHARMACEUTICALS,INC./RIDGEFIELD-2011-AU-02125AU

PATIENT
  Sex: Female
  Weight: 160 kg

DRUGS (7)
  1. PRADAXA [Suspect]
     Indication: CEREBROVASCULAR ACCIDENT PROPHYLAXIS
     Dosage: 300 MG
     Dates: start: 20110912, end: 20111108
  2. NITROLINGUAL PUMPSPRAY [Concomitant]
     Route: 060
  3. PRADAXA [Suspect]
     Indication: ATRIAL FIBRILLATION
  4. METOPROLOL TARTRATE [Concomitant]
     Dosage: 100 MG
     Route: 048
  5. GLYCEROL TRINITRATE [Concomitant]
     Route: 060
  6. LEXAPRO [Concomitant]
     Dosage: 20 MG
     Route: 048
  7. PERINDOPRIL ERBUMINE [Concomitant]
     Dosage: 8 MG
     Route: 048

REACTIONS (4)
  - CHEST PAIN [None]
  - DYSPEPSIA [None]
  - GASTROOESOPHAGEAL REFLUX DISEASE [None]
  - ABDOMINAL PAIN UPPER [None]
